FAERS Safety Report 8799564 (Version 1)
Quarter: 2012Q4

REPORT INFORMATION
  Report Type: 
  Country: US (occurrence: US)
  Receive Date: 20120919
  Receipt Date: 20120919
  Transmission Date: 20130627
  Serious: No
  Sender: FDA-Public Use
  Company Number: US-PFIZER INC-2012228483

PATIENT
  Age: 80 Year
  Sex: Male
  Weight: 75.74 kg

DRUGS (4)
  1. VIAGRA [Suspect]
     Indication: ERECTILE DYSFUNCTION
     Dosage: 100 mg, as needed
     Route: 048
     Dates: end: 201208
  2. NORVASC [Concomitant]
     Indication: HYPERTENSION
     Dosage: UNK
  3. PRILOSEC [Concomitant]
     Indication: DYSPEPSIA
     Dosage: UNK, as needed
  4. FLOMAX [Concomitant]
     Dosage: UNK

REACTIONS (2)
  - Nasal congestion [Unknown]
  - Drug ineffective [Unknown]
